FAERS Safety Report 9582054 (Version 2)
Quarter: 2013Q4

REPORT INFORMATION
  Report Type: Spontaneous
  Country: US (occurrence: US)
  Receive Date: 20131002
  Receipt Date: 20131002
  Transmission Date: 20140711
  Serious: Yes (Hospitalization)
  Sender: FDA-Public Use
  Company Number: US-BAXTER-2013BAX037667

PATIENT
  Age: 55 Year
  Sex: Male

DRUGS (8)
  1. DIANEAL LOW CALCIUM [Suspect]
     Indication: PERITONEAL DIALYSIS
     Route: 033
     Dates: start: 20130613, end: 201309
  2. DIANEAL LOW CALCIUM [Suspect]
     Route: 033
     Dates: start: 20130909
  3. DIANEAL LOW CALCIUM [Suspect]
     Indication: PERITONEAL DIALYSIS
     Route: 033
     Dates: start: 20130613, end: 201309
  4. DIANEAL LOW CALCIUM [Suspect]
     Route: 033
     Dates: start: 20130909
  5. DIANEAL LOW CALCIUM [Suspect]
     Indication: PERITONEAL DIALYSIS
     Route: 033
     Dates: start: 20130613, end: 201309
  6. DIANEAL LOW CALCIUM [Suspect]
     Route: 033
     Dates: start: 20130909
  7. EXTRANEAL [Suspect]
     Indication: PERITONEAL DIALYSIS
     Route: 033
     Dates: start: 20130613, end: 201309
  8. EXTRANEAL [Suspect]
     Route: 033
     Dates: start: 20130909

REACTIONS (1)
  - Fluid overload [Recovered/Resolved with Sequelae]
